FAERS Safety Report 6183330-5 (Version None)
Quarter: 2009Q2

REPORT INFORMATION
  Report Type: 
  Country: None (occurrence: None)
  Receive Date: 20090507
  Receipt Date: 20090430
  Transmission Date: 20091009
  Serious: Yes (Hospitalization, Other)
  Sender: FDA-Public Use
  Company Number: US-WYE-H09169409

PATIENT
  Sex: Female
  Weight: 90.8 kg

DRUGS (3)
  1. PREMARIN [Suspect]
     Indication: EPISTAXIS
     Dosage: UNKNOWN
     Route: 045
     Dates: start: 20090416, end: 20090427
  2. POTASSIUM CHLORIDE [Suspect]
     Dosage: UNKNOWN
     Route: 065
  3. LEVOXYL [Concomitant]
     Dosage: UNKNOWN
     Route: 065

REACTIONS (2)
  - OFF LABEL USE [None]
  - PSYCHOTIC DISORDER [None]
